FAERS Safety Report 6741106-1 (Version None)
Quarter: 2010Q2

REPORT INFORMATION
  Report Type: 
  Country: None (occurrence: None)
  Receive Date: 20100526
  Receipt Date: 20100511
  Transmission Date: 20101027
  Serious: Yes (Death, Hospitalization, Other)
  Sender: FDA-Public Use
  Company Number: -CUBIST-2010S1000233

PATIENT
  Age: 68 Year
  Sex: Female

DRUGS (6)
  1. CUBICIN [Suspect]
     Indication: SKIN INFECTION
     Route: 042
     Dates: start: 20100422
  2. CUBICIN [Suspect]
     Indication: SOFT TISSUE INFECTION
     Route: 042
     Dates: start: 20100422
  3. CUBICIN [Suspect]
     Route: 042
  4. CUBICIN [Suspect]
     Route: 042
  5. LEVOFLOXACIN [Concomitant]
     Indication: DRUG USE FOR UNKNOWN INDICATION
     Dates: start: 20100427
  6. MEROPENEM [Concomitant]
     Indication: DRUG USE FOR UNKNOWN INDICATION
     Dates: start: 20100418

REACTIONS (9)
  - ABDOMINAL PAIN [None]
  - CONSTIPATION [None]
  - EMBOLISM [None]
  - FAECES DISCOLOURED [None]
  - FATIGUE [None]
  - HEPATIC FAILURE [None]
  - JAUNDICE [None]
  - PYREXIA [None]
  - URINE COLOUR ABNORMAL [None]
